FAERS Safety Report 23292244 (Version 1)
Quarter: 2023Q4

REPORT INFORMATION
  Report Type: Spontaneous
  Country: US (occurrence: None)
  Receive Date: 20231212
  Receipt Date: 20231212
  Transmission Date: 20240109
  Serious: Yes (Other)
  Sender: FDA-Public Use
  Company Number: None

PATIENT
  Age: 66 Year
  Sex: Female
  Weight: 93.6 kg

DRUGS (8)
  1. FLUCONAZOLE [Suspect]
     Active Substance: FLUCONAZOLE
     Indication: Abdominal infection
     Dates: start: 20130907, end: 20231002
  2. LEVOFLOXACIN [Suspect]
     Active Substance: LEVOFLOXACIN
     Indication: Abdominal infection
     Dates: start: 20130907, end: 20231002
  3. OMEPRAZOLE [Concomitant]
     Active Substance: OMEPRAZOLE
  4. SYNTHROID [Concomitant]
     Active Substance: LEVOTHYROXINE SODIUM
  5. LEXAPRO [Concomitant]
     Active Substance: ESCITALOPRAM OXALATE
  6. GABAPENTIN [Concomitant]
     Active Substance: GABAPENTIN
  7. NAPROXEN [Concomitant]
     Active Substance: NAPROXEN
  8. Daily Vitamin supplements [Concomitant]

REACTIONS (17)
  - Abscess [None]
  - Multi-organ disorder [None]
  - Pneumonia [None]
  - Urinary tract infection [None]
  - Unevaluable event [None]
  - Dry mouth [None]
  - Pain in extremity [None]
  - Pain in extremity [None]
  - Arthralgia [None]
  - Neuralgia [None]
  - Arthralgia [None]
  - Pain [None]
  - Hypoaesthesia [None]
  - Alopecia [None]
  - Hot flush [None]
  - Abdominal pain upper [None]
  - Feeling abnormal [None]

NARRATIVE: CASE EVENT DATE: 20231015
